FAERS Safety Report 9108309 (Version 1)
Quarter: 2013Q1

REPORT INFORMATION
  Report Type: Spontaneous
  Country: US (occurrence: US)
  Receive Date: 20130222
  Receipt Date: 20130222
  Transmission Date: 20140127
  Serious: Yes (Other)
  Sender: FDA-Public Use
  Company Number: US-BAYER-2013-022409

PATIENT
  Sex: Male

DRUGS (9)
  1. BETASERON [Suspect]
     Indication: PRODUCT USED FOR UNKNOWN INDICATION
     Dosage: WEEKS 1-2: .25 ML, EVERY OTHER DAY
     Route: 058
  2. BETASERON [Suspect]
     Indication: PRODUCT USED FOR UNKNOWN INDICATION
     Dosage: WEEKS 3-4: .5 ML, EVERY OTHER DAY
     Route: 058
  3. BETASERON [Suspect]
     Indication: PRODUCT USED FOR UNKNOWN INDICATION
     Dosage: WEEKS 5-6: .75 ML, EVERY OTHER DAY
     Route: 058
  4. BETASERON [Suspect]
     Indication: PRODUCT USED FOR UNKNOWN INDICATION
     Dosage: WEEKS 7+: 1ML, EVERY OTHER DAY
     Route: 058
  5. LORAZEPAM [Concomitant]
     Dosage: 1 MG, UNK
  6. MORPHINE SULFATE [Concomitant]
     Dosage: 60 MG EXTENDED RELEASE, UNK
  7. MORPHINE SULFATE [Concomitant]
     Dosage: 15 MG, UNK
  8. HYDROCODONE/ACETAMINOPHEN [Concomitant]
     Dosage: 5-325MG
  9. AMBIEN [Concomitant]
     Dosage: 5 MG, UNK

REACTIONS (1)
  - Colon cancer recurrent [Unknown]
